FAERS Safety Report 26071940 (Version 2)
Quarter: 2025Q4

REPORT INFORMATION
  Report Type: Spontaneous
  Country: US (occurrence: US)
  Receive Date: 20251120
  Receipt Date: 20251202
  Transmission Date: 20260118
  Serious: Yes (Other)
  Sender: PFIZER
  Company Number: US-PFIZER INC-202500225309

PATIENT
  Age: 57 Year
  Sex: Male

DRUGS (2)
  1. DOBUTAMINE HYDROCHLORIDE [Suspect]
     Active Substance: DOBUTAMINE HYDROCHLORIDE
     Indication: Stress echocardiogram
     Dosage: UNK
     Dates: start: 20170811, end: 20170811
  2. DEFINITY [Concomitant]
     Active Substance: PERFLUTREN
     Dosage: UNK
     Dates: start: 20170811, end: 20170811

REACTIONS (5)
  - Blood pressure systolic increased [Recovered/Resolved]
  - Throat tightness [Recovered/Resolved]
  - Back pain [Recovered/Resolved]
  - Musculoskeletal discomfort [Recovered/Resolved]
  - Off label use [Unknown]

NARRATIVE: CASE EVENT DATE: 20170811
